FAERS Safety Report 15768063 (Version 2)
Quarter: 2019Q1

REPORT INFORMATION
  Report Type: Spontaneous
  Country: CH (occurrence: CH)
  Receive Date: 20181227
  Receipt Date: 20190118
  Transmission Date: 20190417
  Serious: Yes (Other)
  Sender: FDA-Public Use
  Company Number: CH-SA-2018SA390006

PATIENT
  Sex: Male

DRUGS (1)
  1. SOLIQUA 100/33 [Suspect]
     Active Substance: INSULIN GLARGINE\LIXISENATIDE
     Dosage: UNKNOWN
     Route: 065

REACTIONS (5)
  - Paraesthesia [Unknown]
  - Peripheral swelling [Unknown]
  - Hypersensitivity [Unknown]
  - Respiratory disorder [Unknown]
  - Dyspnoea [Unknown]
